FAERS Safety Report 7265971-7 (Version None)
Quarter: 2011Q1

REPORT INFORMATION
  Report Type: 
  Country: None (occurrence: None)
  Receive Date: 20110131
  Receipt Date: 20110126
  Transmission Date: 20110831
  Serious: Yes (Life-Threatening, Hospitalization, Disabling)
  Sender: FDA-Public Use
  Company Number: GXKR2010IE13903

PATIENT
  Age: 80 Year
  Sex: Male

DRUGS (6)
  1. INEGY [Concomitant]
  2. GLUCOPHAGE [Concomitant]
  3. CELECTOL [Concomitant]
  4. LOSARTAN POTASSIUM [Suspect]
     Indication: HYPERTENSION
     Dosage: 1 DF, QD
     Route: 048
     Dates: start: 20101122, end: 20101201
  5. ACETYLSALICYLIC ACID SRT [Concomitant]
  6. BENDROFLUMETHIAZIDE [Concomitant]

REACTIONS (9)
  - DIZZINESS [None]
  - ABDOMINAL DISCOMFORT [None]
  - SYNCOPE [None]
  - MALAISE [None]
  - BLOOD PRESSURE DECREASED [None]
  - CONTUSION [None]
  - FALL [None]
  - AMNESIA [None]
  - WHEELCHAIR USER [None]
